FAERS Safety Report 13968371 (Version 1)
Quarter: 2017Q3

REPORT INFORMATION
  Report Type: Spontaneous
  Country: US (occurrence: US)
  Receive Date: 20170914
  Receipt Date: 20170914
  Transmission Date: 20171128
  Serious: Yes (Hospitalization)
  Sender: FDA-Public Use
  Company Number: US-MYLANLABS-2017M1056475

PATIENT
  Age: 22 Month
  Sex: Female

DRUGS (1)
  1. METHADONE [Suspect]
     Active Substance: METHADONE HYDROCHLORIDE
     Indication: OVERDOSE
     Dosage: UNK
     Route: 048

REACTIONS (5)
  - Respiratory depression [Recovering/Resolving]
  - Accidental exposure to product by child [Recovering/Resolving]
  - Cyanosis [Recovering/Resolving]
  - Accidental overdose [Recovering/Resolving]
  - Somnolence [Recovering/Resolving]
